FAERS Safety Report 7184353-X (Version None)
Quarter: 2010Q4

REPORT INFORMATION
  Report Type: 
  Country: None (occurrence: None)
  Receive Date: 20101222
  Receipt Date: 20101215
  Transmission Date: 20110411
  Serious: Yes (Hospitalization, Other)
  Sender: FDA-Public Use
  Company Number: JP-PFIZER INC-2010172543

PATIENT
  Age: 9 Year
  Sex: Female

DRUGS (8)
  1. MYLOTARG [Suspect]
     Indication: ACUTE MYELOID LEUKAEMIA
  2. IDARUBICIN HCL [Suspect]
     Indication: ACUTE MYELOID LEUKAEMIA
  3. CYTARABINE [Suspect]
     Indication: ACUTE MYELOID LEUKAEMIA
  4. FLUDARABINE [Suspect]
     Indication: ACUTE MYELOID LEUKAEMIA
  5. MELPHALAN [Concomitant]
     Indication: BONE MARROW TRANSPLANT
  6. ANTI-THYMOCYTE GLOBULIN NOS [Concomitant]
     Indication: BONE MARROW TRANSPLANT
  7. METHOTREXATE [Concomitant]
     Indication: PROPHYLAXIS
  8. FK506 [Concomitant]
     Indication: PROPHYLAXIS

REACTIONS (5)
  - GRAFT VERSUS HOST DISEASE [None]
  - HAEMATOTOXICITY [None]
  - MUCOUS MEMBRANE DISORDER [None]
  - THROMBOTIC MICROANGIOPATHY [None]
  - VENOOCCLUSIVE LIVER DISEASE [None]
